FAERS Safety Report 4331757-6 (Version None)
Quarter: 2004Q2

REPORT INFORMATION
  Report Type: 
  Country: None (occurrence: None)
  Receive Date: 20040405
  Receipt Date: 20030603
  Transmission Date: 20050107
  Serious: No
  Sender: FDA-Public Use
  Company Number: US-GLAXOSMITHKLINE-A0411065A

PATIENT
  Age: 6 Year
  Sex: Male

DRUGS (3)
  1. FLOVENT [Suspect]
     Indication: ILL-DEFINED DISORDER
     Route: 065
  2. NASONEX [Suspect]
     Indication: ILL-DEFINED DISORDER
     Route: 065
  3. SINGULAIR [Suspect]
     Indication: ILL-DEFINED DISORDER
     Route: 065

REACTIONS (5)
  - ABNORMAL BEHAVIOUR [None]
  - FATIGUE [None]
  - PALLOR [None]
  - SKIN DISCOLOURATION [None]
  - VISION BLURRED [None]
